FAERS Safety Report 15578336 (Version 4)
Quarter: 2019Q1

REPORT INFORMATION
  Report Type: Spontaneous
  Country: US (occurrence: US)
  Receive Date: 20181102
  Receipt Date: 20190208
  Transmission Date: 20190417
  Serious: No
  Sender: FDA-Public Use
  Company Number: US-BRISTOL-MYERS SQUIBB COMPANY-BMS-2018-102615

PATIENT
  Sex: Male
  Weight: 114.3 kg

DRUGS (2)
  1. ORENCIA [Suspect]
     Active Substance: ABATACEPT
     Indication: PSORIASIS
     Route: 065
  2. ORENCIA [Suspect]
     Active Substance: ABATACEPT
     Indication: PSORIATIC ARTHROPATHY
     Dosage: 125 MG, QWK
     Route: 058
     Dates: start: 201808

REACTIONS (5)
  - Product use in unapproved indication [Unknown]
  - Peripheral swelling [Unknown]
  - Psoriasis [Unknown]
  - Drug ineffective [Unknown]
  - Hypersensitivity [Unknown]
